FAERS Safety Report 25454686 (Version 1)
Quarter: 2025Q2

REPORT INFORMATION
  Report Type: Spontaneous
  Country: ES (occurrence: ES)
  Receive Date: 20250619
  Receipt Date: 20250619
  Transmission Date: 20250716
  Serious: Yes (Other)
  Sender: CELLTRION
  Company Number: ES-ROCHE-10000182840

PATIENT

DRUGS (4)
  1. BEVACIZUMAB [Suspect]
     Active Substance: BEVACIZUMAB
     Indication: Hepatocellular carcinoma
     Route: 065
     Dates: start: 20220630
  2. ATEZOLIZUMAB [Suspect]
     Active Substance: ATEZOLIZUMAB
     Indication: Hepatocellular carcinoma
     Route: 065
     Dates: start: 20220630
  3. LOPERAMIDE [Concomitant]
     Active Substance: LOPERAMIDE
  4. CARVEDILOL [Concomitant]
     Active Substance: CARVEDILOL

REACTIONS (5)
  - Anorectal varices haemorrhage [Unknown]
  - Gastric varices haemorrhage [Unknown]
  - Oesophageal varices haemorrhage [Unknown]
  - Diarrhoea [Recovering/Resolving]
  - Intentional product use issue [Unknown]
